FAERS Safety Report 7406533-8 (Version None)
Quarter: 2011Q2

REPORT INFORMATION
  Report Type: 
  Country: None (occurrence: None)
  Receive Date: 20110411
  Receipt Date: 20110330
  Transmission Date: 20111010
  Serious: Yes (Hospitalization, Other)
  Sender: FDA-Public Use
  Company Number: US-ELI_LILLY_AND_COMPANY-US201102001535

PATIENT
  Sex: Female
  Weight: 57.6 kg

DRUGS (2)
  1. ALIMTA [Suspect]
     Indication: BLADDER CANCER
     Dosage: 800 MG, (21 DAYS) 3/W
     Route: 042
     Dates: start: 20101130
  2. FOLIC ACID [Concomitant]
     Dosage: UNK, UNKNOWN
     Route: 048
     Dates: start: 20100401

REACTIONS (3)
  - HEPATIC HAEMORRHAGE [None]
  - OFF LABEL USE [None]
  - NEOPLASM MALIGNANT [None]
